FAERS Safety Report 4937393-2 (Version None)
Quarter: 2006Q1

REPORT INFORMATION
  Report Type: 
  Country: None (occurrence: None)
  Receive Date: 20060302
  Receipt Date: 20060215
  Transmission Date: 20060701
  Serious: Yes (Other)
  Sender: FDA-Public Use
  Company Number: DE200602002018

PATIENT
  Age: 33 Year
  Sex: Female
  Weight: 70 kg

DRUGS (6)
  1. CYMBALTA [Suspect]
     Indication: DEPRESSION
     Dosage: - SEE IMAGE
     Route: 048
     Dates: start: 20051014, end: 20051001
  2. CYMBALTA [Suspect]
     Indication: DEPRESSION
     Dosage: - SEE IMAGE
     Route: 048
     Dates: start: 20051001, end: 20060110
  3. BUDESONIDE [Concomitant]
  4. SALBUTAMOL (SALBUTAMOL) [Concomitant]
  5. TELFAST /SCH/(FEXOFENADINE HYDROCHLORIDE) [Concomitant]
  6. CETIRIZINE HCL [Concomitant]

REACTIONS (25)
  - ANORGASMIA [None]
  - ASTHENIA [None]
  - CHILLS [None]
  - CONSTIPATION [None]
  - CRYING [None]
  - DIARRHOEA [None]
  - DISSOCIATION [None]
  - DRUG WITHDRAWAL SYNDROME [None]
  - DRY MOUTH [None]
  - EPISTAXIS [None]
  - HOT FLUSH [None]
  - HYPERTENSION [None]
  - HYPOTENSION [None]
  - HYPOTONIA [None]
  - LETHARGY [None]
  - MOOD SWINGS [None]
  - MUSCLE SPASMS [None]
  - NERVOUSNESS [None]
  - NIGHTMARE [None]
  - SLEEP DISORDER [None]
  - SOMNOLENCE [None]
  - TACHYCARDIA [None]
  - TENSION [None]
  - VISION BLURRED [None]
  - WEIGHT DECREASED [None]
